FAERS Safety Report 5101936-9 (Version None)
Quarter: 2006Q3

REPORT INFORMATION
  Report Type: 
  Country: None (occurrence: None)
  Receive Date: 20060907
  Receipt Date: 20060823
  Transmission Date: 20061208
  Serious: Yes (Hospitalization)
  Sender: FDA-Public Use
  Company Number: 2006PV019927

PATIENT
  Age: 68 Year
  Sex: Female
  Weight: 78.9259 kg

DRUGS (5)
  1. BYETTA [Suspect]
     Indication: DIABETES MELLITUS NON-INSULIN-DEPENDENT
     Dosage: 10 MCG; BID; SC;  5 MCG; BID; SC
     Route: 058
     Dates: start: 20050101, end: 20060101
  2. BYETTA [Suspect]
     Indication: DIABETES MELLITUS NON-INSULIN-DEPENDENT
     Dosage: 10 MCG; BID; SC;  5 MCG; BID; SC
     Route: 058
     Dates: start: 20060101
  3. HUMALOG [Concomitant]
  4. NOVOLIN N [Concomitant]
  5. AVANDAMET 2/500 MG [Concomitant]

REACTIONS (11)
  - ANAEMIA [None]
  - ANGIOPLASTY [None]
  - ASTHENIA [None]
  - BLOOD GLUCOSE DECREASED [None]
  - CHILLS [None]
  - CORONARY ARTERIAL STENT INSERTION [None]
  - DECREASED APPETITE [None]
  - FEELING COLD [None]
  - HUNGER [None]
  - SLUGGISHNESS [None]
  - WEIGHT DECREASED [None]
